FAERS Safety Report 5631624-1 (Version None)
Quarter: 2008Q1

REPORT INFORMATION
  Report Type: 
  Country: None (occurrence: None)
  Receive Date: 20080220
  Receipt Date: 20080218
  Transmission Date: 20080703
  Serious: Yes (Other)
  Sender: FDA-Public Use
  Company Number: FR-SP-2007-03974

PATIENT
  Age: 20 Year
  Sex: Female

DRUGS (1)
  1. IMMUCYST [Suspect]
     Indication: DRUG ADMINISTRATION ERROR
     Route: 062

REACTIONS (6)
  - ACCIDENTAL EXPOSURE [None]
  - ADMINISTRATION SITE REACTION [None]
  - INCORRECT ROUTE OF DRUG ADMINISTRATION [None]
  - INFLAMMATION [None]
  - OEDEMA [None]
  - PAIN IN EXTREMITY [None]
